FAERS Safety Report 5093192-5 (Version None)
Quarter: 2006Q3

REPORT INFORMATION
  Report Type: 
  Country: None (occurrence: None)
  Receive Date: 20060825
  Receipt Date: 20060818
  Transmission Date: 20061208
  Serious: Yes (Hospitalization)
  Sender: FDA-Public Use
  Company Number: HQWYE718118AUG06

PATIENT
  Age: 52 Year
  Sex: Male
  Weight: 91.8 kg

DRUGS (13)
  1. PROGRAF [Suspect]
     Indication: PROPHYLAXIS AGAINST TRANSPLANT REJECTION
     Dosage: 2 MG Q AM / 3 MG Q PM, ORAL
     Route: 048
     Dates: start: 20040926
  2. CELLCEPT [Suspect]
     Indication: PROPHYLAXIS AGAINST TRANSPLANT REJECTION
     Dosage: 500 MG 2X PER 1 DAY, ORAL
     Route: 048
     Dates: start: 20040926
  3. ZENAPAX [Concomitant]
  4. PREDNISONE TAB [Concomitant]
  5. PREVACID [Concomitant]
  6. LIPITOR [Concomitant]
  7. NORVASC [Concomitant]
  8. LOPRESSOR [Concomitant]
  9. SEPTRA [Concomitant]
  10. ACYCLOVIR [Concomitant]
  11. NOVOLOG [Concomitant]
  12. LASIX [Concomitant]
  13. ROCALTROL [Concomitant]

REACTIONS (3)
  - DRUG INEFFECTIVE [None]
  - KIDNEY TRANSPLANT REJECTION [None]
  - REFUSAL OF TREATMENT BY PATIENT [None]
